FAERS Safety Report 19851727 (Version 1)
Quarter: 2021Q3

REPORT INFORMATION
  Report Type: Spontaneous
  Country: US (occurrence: CN)
  Receive Date: 20210917
  Receipt Date: 20210917
  Transmission Date: 20211014
  Serious: Yes (Hospitalization)
  Sender: FDA-Public Use
  Company Number: CN-JIANGSU HENGRUI MEDICINE CO., LTD.-2118526

PATIENT
  Age: 64 Year
  Sex: Male

DRUGS (3)
  1. FOLFIRI [Suspect]
     Active Substance: FLUOROURACIL\IRINOTECAN\LEUCOVORIN
  2. DOCETAXEL INJECTION [Suspect]
     Active Substance: DOCETAXEL
  3. IRINOTECAN HYDROCHLORIDE INJECTION, 20 MG/ML (2 ML AND 5 ML VIALS) (AN [Suspect]
     Active Substance: IRINOTECAN HYDROCHLORIDE
     Indication: PANCREATIC CARCINOMA

REACTIONS (2)
  - Pulmonary tuberculosis [Not Recovered/Not Resolved]
  - Product use in unapproved indication [Unknown]
